FAERS Safety Report 8823731 (Version 1)
Quarter: 2012Q4

REPORT INFORMATION
  Report Type: 
  Country: US (occurrence: US)
  Receive Date: 20121003
  Receipt Date: 20121003
  Transmission Date: 20130627
  Serious: Yes (Life-Threatening)
  Sender: FDA-Public Use
  Company Number: US-ROXANE LABORATORIES, INC.-2012-RO-01938RO

PATIENT
  Age: 86 Year
  Sex: Female

DRUGS (5)
  1. CALCIUM CARBONATE [Suspect]
  2. PREDNISONE [Suspect]
  3. TERIPARATIDE [Suspect]
     Indication: OSTEOPOROSIS
  4. VITAMIN D [Suspect]
  5. WARFARIN [Suspect]

REACTIONS (1)
  - Calciphylaxis [Not Recovered/Not Resolved]
